FAERS Safety Report 4348879-6 (Version None)
Quarter: 2004Q2

REPORT INFORMATION
  Report Type: 
  Country: None (occurrence: None)
  Receive Date: 20040423
  Receipt Date: 20040409
  Transmission Date: 20050107
  Serious: Yes (Life-Threatening)
  Sender: FDA-Public Use
  Company Number: RENA-10940

PATIENT
  Age: 75 Year
  Sex: Female
  Weight: 36 kg

DRUGS (8)
  1. RENAGEL [Suspect]
     Indication: HYPERPHOSPHATAEMIA
     Dosage: 2.25 G QD PO
     Route: 048
     Dates: start: 20030826, end: 20040303
  2. FUROSEMIDE [Concomitant]
  3. FALECALCITRIOL [Concomitant]
  4. SOFALCONE [Concomitant]
  5. DILAZEP DIHYDROCLORIDE [Concomitant]
  6. NIZATIDINE [Concomitant]
  7. NITROGLYCERIN [Concomitant]
  8. HERBAL EXTRACT NOS [Concomitant]

REACTIONS (9)
  - ABDOMINAL PAIN [None]
  - BLOOD PRESSURE SYSTOLIC INCREASED [None]
  - BODY TEMPERATURE DECREASED [None]
  - CONDITION AGGRAVATED [None]
  - CONSTIPATION [None]
  - INTESTINAL PERFORATION [None]
  - PERITONITIS [None]
  - PYREXIA [None]
  - VOMITING [None]
